FAERS Safety Report 6853433-8 (Version None)
Quarter: 2010Q3

REPORT INFORMATION
  Report Type: 
  Country: None (occurrence: None)
  Receive Date: 20100717
  Receipt Date: 20071207
  Transmission Date: 20110219
  Serious: No
  Sender: FDA-Public Use
  Company Number: US-PFIZER INC-2007104595

PATIENT
  Sex: Female
  Weight: 61.818 kg

DRUGS (12)
  1. CHANTIX [Suspect]
     Indication: SMOKING CESSATION THERAPY
     Dates: start: 20071120
  2. DEPAKOTE [Concomitant]
  3. TOPAMAX [Concomitant]
  4. LEXAPRO [Concomitant]
  5. KLONOPIN [Concomitant]
  6. WELLBUTRIN [Concomitant]
  7. IMITREX [Concomitant]
  8. ULTRAM [Concomitant]
  9. PREVACID [Concomitant]
  10. SYNTHROID [Concomitant]
  11. REGLAN [Concomitant]
  12. XANAX [Concomitant]

REACTIONS (3)
  - HEADACHE [None]
  - INSOMNIA [None]
  - NAUSEA [None]
